FAERS Safety Report 8919119 (Version 1)
Quarter: 2012Q4

REPORT INFORMATION
  Report Type: 
  Country: IT (occurrence: IT)
  Receive Date: 20121121
  Receipt Date: 20121121
  Transmission Date: 20130627
  Serious: Yes (Other)
  Sender: FDA-Public Use
  Company Number: IT-SANOFI-AVENTIS-2012SA082903

PATIENT
  Age: 34 Year
  Sex: Female

DRUGS (5)
  1. RIFADIN [Suspect]
     Indication: PULMONARY TUBERCULOSIS
     Route: 048
     Dates: start: 201206
  2. NICOZID [Suspect]
     Indication: PULMONARY TUBERCULOSIS
     Route: 048
     Dates: start: 201206
  3. PIRALDINA [Concomitant]
     Indication: PULMONARY TUBERCULOSIS
     Route: 048
     Dates: start: 201206
  4. ETAMBUTOL [Concomitant]
     Indication: PULMONARY TUBERCULOSIS
     Route: 048
     Dates: start: 201206
  5. PYRIDOXINE HYDROCHLORIDE [Concomitant]
     Indication: PROPHYLAXIS

REACTIONS (1)
  - Retinal degeneration [Recovering/Resolving]
